FAERS Safety Report 24106671 (Version 1)
Quarter: 2024Q3

REPORT INFORMATION
  Report Type: Spontaneous
  Country: CH (occurrence: CH)
  Receive Date: 20240717
  Receipt Date: 20240717
  Transmission Date: 20241016
  Serious: Yes (Death)
  Sender: ELI LILLY AND CO
  Company Number: CH-ELI_LILLY_AND_COMPANY-CH202407008809

PATIENT
  Age: 79 Year
  Sex: Male

DRUGS (1)
  1. CYRAMZA [Suspect]
     Active Substance: RAMUCIRUMAB
     Indication: Product used for unknown indication
     Dosage: 700 MG, OTHER  (Q3W, 1X500MG AND 2X100MG)
     Route: 065
     Dates: start: 20221123

REACTIONS (1)
  - Death [Fatal]
